FAERS Safety Report 24308892 (Version 1)
Quarter: 2024Q3

REPORT INFORMATION
  Report Type: Spontaneous
  Country: US (occurrence: None)
  Receive Date: 20240911
  Receipt Date: 20240911
  Transmission Date: 20241017
  Serious: Yes (Other)
  Sender: Public
  Company Number: None

PATIENT
  Age: 45 Year
  Sex: Female
  Weight: 90 kg

DRUGS (1)
  1. WEGOVY [Suspect]
     Active Substance: SEMAGLUTIDE
     Indication: Cardiovascular disorder
     Dosage: FREQUENCY : WEEKLY;?
     Route: 058
     Dates: start: 20240726

REACTIONS (5)
  - Ventricular extrasystoles [None]
  - Aphthous ulcer [None]
  - Heart rate increased [None]
  - Blood pressure increased [None]
  - Middle insomnia [None]

NARRATIVE: CASE EVENT DATE: 20240817
